FAERS Safety Report 23484059 (Version 6)
Quarter: 2024Q1

REPORT INFORMATION
  Report Type: Report from Study
  Country: PT (occurrence: PT)
  Receive Date: 20240205
  Receipt Date: 20240326
  Transmission Date: 20240410
  Serious: Yes (Other)
  Sender: FDA-Public Use
  Company Number: PT-ABBVIE-5615715

PATIENT
  Age: 73 Year
  Sex: Male

DRUGS (13)
  1. CARBIDOPA\LEVODOPA [Suspect]
     Active Substance: CARBIDOPA\LEVODOPA
     Indication: Parkinson^s disease
     Dosage: 20 MG + 5 MG ?FREQUENCY TEXT: MORN:9CC;MAINT:5.2CC/H;EXTR:3CC
     Route: 050
     Dates: start: 202312, end: 20240126
  2. CARBIDOPA\LEVODOPA [Suspect]
     Active Substance: CARBIDOPA\LEVODOPA
     Dosage: 20 MG + 5 MG ?FREQUENCY TEXT: MORN:8CC;MAINT:4CC/H;EXTR:1CC?LAST ADMIN DATE- DEC 2023
     Route: 050
     Dates: start: 20231215, end: 202312
  3. CARBIDOPA\LEVODOPA [Suspect]
     Active Substance: CARBIDOPA\LEVODOPA
     Dosage: 20 MG + 5 MG ?FREQUENCY TEXT: MORN:13.5CC;MAINT:5.7CC/H;EXTR:3.5CC
     Route: 050
     Dates: start: 20240126, end: 20240129
  4. CARBIDOPA\LEVODOPA [Suspect]
     Active Substance: CARBIDOPA\LEVODOPA
     Dosage: 20 MG + 5 MG (GASTRIC)?FREQUENCY TEXT: MORN:13.5CC;MAINT:5.7CC/H;EXTR:3.5CC
     Route: 050
     Dates: start: 20240129, end: 20240202
  5. CARBIDOPA\LEVODOPA [Suspect]
     Active Substance: CARBIDOPA\LEVODOPA
     Dosage: 20 MG + 5 MG (GASTRIC)?FREQUENCY TEXT: MORN:14.5CC;MAINT:5.7CC/H;EXTR:4CC
     Route: 050
     Dates: start: 20240202, end: 20240214
  6. CARBIDOPA\LEVODOPA [Suspect]
     Active Substance: CARBIDOPA\LEVODOPA
     Dosage: 20 MG + 5 MG (GASTRIC) FREQUENCY TEXT: MORN:15.5CC;MAINT:5.7CC/H;EXTR:5.9CC PRODUCT
     Route: 050
     Dates: start: 20240306, end: 202403
  7. CARBIDOPA\LEVODOPA [Suspect]
     Active Substance: CARBIDOPA\LEVODOPA
     Dosage: 20 MG + 5 MG (GASTRIC), ?FREQUENCY TEXT:MORN:14.5CC;MAINT:5.7CC/H;EXTR:5.9CC?DOSE INCREASED
     Route: 050
     Dates: start: 20240214, end: 20240306
  8. CARBIDOPA\LEVODOPA [Suspect]
     Active Substance: CARBIDOPA\LEVODOPA
     Dosage: 20 MG + 5 MG (GASTRIC)  FREQUENCY TEXT:15.5CC;MAINT:6.1CC/H;EXTR:5.9CC ?DOSE INCREASED
     Route: 050
     Dates: start: 202403
  9. BISACODYL [Concomitant]
     Active Substance: BISACODYL
     Indication: Product used for unknown indication
     Dosage: 1 TABLET
     Route: 048
  10. RIVASTIGMINE TARTRATE [Concomitant]
     Active Substance: RIVASTIGMINE TARTRATE
     Indication: Product used for unknown indication
     Dosage: RIVASTIGMINA TD 9.5?START DATE TEXT: BEFORE DUODOPA
     Route: 062
  11. PSIDEP [Concomitant]
     Indication: Product used for unknown indication
     Dosage: 1 TABLET?FORM STRENGTH: 15 MILLIGRAM?FREQUENCY TEXT: AT BEDTIME?START DATE TEXT: BEFORE DUODOPA
     Route: 048
  12. QUETIAPINE [Concomitant]
     Active Substance: QUETIAPINE
     Indication: Product used for unknown indication
     Dosage: 0.5 TABLET
     Route: 048
  13. QUETIAPINE [Concomitant]
     Active Substance: QUETIAPINE
     Indication: Product used for unknown indication
     Dosage: FORM STRENGTH 100 MILLIGRAM?FREQUENCY TEXT: AT BEDTIME?START DATE TEXT: BEFORE DUODOPA?0.5 TABLET
     Route: 048

REACTIONS (13)
  - Thermal burn [Recovered/Resolved]
  - Stoma site inflammation [Recovered/Resolved]
  - Stoma site discharge [Recovered/Resolved]
  - Skin ulcer [Not Recovered/Not Resolved]
  - Wound complication [Not Recovered/Not Resolved]
  - Blister infected [Recovered/Resolved]
  - Blister rupture [Recovering/Resolving]
  - Stoma site erythema [Recovered/Resolved]
  - Balance disorder [Not Recovered/Not Resolved]
  - Wound complication [Recovered/Resolved]
  - Bradykinesia [Not Recovered/Not Resolved]
  - Inflammation of wound [Recovered/Resolved]
  - Purulence [Recovered/Resolved]

NARRATIVE: CASE EVENT DATE: 20240101
